FAERS Safety Report 6844211-4 (Version None)
Quarter: 2010Q3

REPORT INFORMATION
  Report Type: 
  Country: None (occurrence: None)
  Receive Date: 20100715
  Receipt Date: 20100707
  Transmission Date: 20110219
  Serious: Yes (Hospitalization)
  Sender: FDA-Public Use
  Company Number: B0555580A

PATIENT
  Sex: Male

DRUGS (19)
  1. TOPOTECAN [Suspect]
     Route: 048
     Dates: start: 20081110, end: 20081205
  2. METHYLPREDNISOLONE [Concomitant]
     Indication: PROPHYLAXIS
     Dosage: 16MG PER DAY
     Route: 048
     Dates: start: 20081221
  3. ISOPTIN [Concomitant]
     Indication: HYPERTENSION
     Dates: start: 20070601
  4. CORDARONE [Concomitant]
     Route: 048
     Dates: start: 20070601
  5. ADEXOR [Concomitant]
     Indication: HYPERTENSION
     Route: 048
     Dates: start: 20070601
  6. CORVATON RETARD [Concomitant]
     Indication: HYPERTENSION
     Route: 048
     Dates: start: 20070601
  7. CLEXANE [Concomitant]
     Indication: ATRIAL FIBRILLATION
     Route: 058
     Dates: start: 20070601
  8. FURON [Concomitant]
  9. DIGIMERCK [Concomitant]
  10. MILURIT [Concomitant]
  11. PLAVIX [Concomitant]
  12. SPIRIVA [Concomitant]
  13. AEROJET [Concomitant]
  14. PEGFILGRASTIM [Concomitant]
  15. ONDANSETRON [Concomitant]
  16. BOLUS LAXANS [Concomitant]
  17. CEFTIBUTEN [Concomitant]
  18. NEORECORMON [Concomitant]
  19. DIHYDROCODEINE BITARTRATE INJ [Concomitant]

REACTIONS (8)
  - C-REACTIVE PROTEIN INCREASED [None]
  - INFLAMMATION [None]
  - IRON DEFICIENCY [None]
  - LEUKOPENIA [None]
  - PNEUMONIA [None]
  - PYREXIA [None]
  - SPUTUM DISCOLOURED [None]
  - THROMBOCYTOPENIA [None]
